FAERS Safety Report 5597253-3 (Version None)
Quarter: 2008Q1

REPORT INFORMATION
  Report Type: 
  Country: None (occurrence: None)
  Receive Date: 20080121
  Receipt Date: 20080111
  Transmission Date: 20080703
  Serious: Yes (Other)
  Sender: FDA-Public Use
  Company Number: PHBS2007JP21329

PATIENT
  Age: 56 Year
  Sex: Male
  Weight: 73 kg

DRUGS (19)
  1. DIOVAN [Suspect]
     Dosage: 160 MG/D
     Route: 048
  2. DIOVAN [Suspect]
     Dosage: 160 MG, BID
  3. DIOVAN [Suspect]
     Dosage: 20 MG, QD
  4. LOPRESSOR [Suspect]
     Dosage: 240 MG/D
     Route: 048
  5. TRANDATE [Suspect]
     Dosage: 600 MG, TID
  6. CARDENALIN [Concomitant]
     Dosage: 8 MG, TID
  7. CARDENALIN [Concomitant]
     Dosage: 4 MG, BID
  8. NORVASC [Concomitant]
     Dosage: 5 MG, QD
  9. MICARDIS [Concomitant]
     Dosage: 40 MG, QD
  10. MICARDIS [Concomitant]
     Dosage: 20 MG, QD
  11. ADALAT [Concomitant]
     Dosage: 30 MG, TID
  12. ADALAT [Concomitant]
     Dosage: 40 MG, BID
  13. ENALAPRIL MALEATE [Concomitant]
     Dosage: 20 MG, BID
  14. ENALAPRIL MALEATE [Concomitant]
     Dosage: 10 MG, BID
  15. THYRADIN [Suspect]
     Dosage: 225 UG, QD
  16. THYRADIN [Suspect]
     Dosage: 150 UG, QD
  17. CALCIUM CARBONATE [Concomitant]
     Dosage: 1.5 G, TID
     Route: 048
  18. TENORMIN [Concomitant]
     Dosage: 50 MG, QD
  19. SEVELAMER HYDROCHLORIDE [Suspect]

REACTIONS (3)
  - BLOOD THYROID STIMULATING HORMONE ABNORMAL [None]
  - DRUG INTERACTION [None]
  - HYPERTENSION [None]
